FAERS Safety Report 12880782 (Version 1)
Quarter: 2016Q4

REPORT INFORMATION
  Report Type: Spontaneous
  Country: US (occurrence: US)
  Receive Date: 20161024
  Receipt Date: 20161024
  Transmission Date: 20170207
  Serious: Yes (Life-Threatening, Hospitalization, Disabling, Other)
  Sender: FDA-Public Use
  Company Number: None

PATIENT
  Age: 73 Year
  Sex: Female
  Weight: 78.75 kg

DRUGS (3)
  1. LEVOTHYROXIN [Concomitant]
     Active Substance: LEVOTHYROXINE
  2. ADVIL [Concomitant]
     Active Substance: IBUPROFEN
  3. TAXOTERE [Suspect]
     Active Substance: DOCETAXEL
     Indication: BREAST CANCER
     Dosage: INTRAVENOUS (NOT OTHERWISE SPECIFIED)
     Route: 042

REACTIONS (10)
  - Nail infection [None]
  - Activities of daily living impaired [None]
  - Neuropathy peripheral [None]
  - Psoriatic arthropathy [None]
  - Respiratory disorder [None]
  - Back pain [None]
  - Alopecia [None]
  - Onychomadesis [None]
  - Infection [None]
  - Asthenia [None]

NARRATIVE: CASE EVENT DATE: 20110815
